FAERS Safety Report 21898363 (Version 1)
Quarter: 2023Q1

REPORT INFORMATION
  Report Type: Spontaneous
  Country: FR (occurrence: FR)
  Receive Date: 20230123
  Receipt Date: 20230123
  Transmission Date: 20230417
  Serious: Yes (Other)
  Sender: FDA-Public Use
  Company Number: None

PATIENT
  Age: 77 Year
  Sex: Male

DRUGS (6)
  1. CIPROFLOXACIN [Suspect]
     Active Substance: CIPROFLOXACIN
     Indication: Infection
     Dosage: 1 GRAM, QD
     Route: 048
     Dates: start: 20221025, end: 20221031
  2. ONDANSETRON [Suspect]
     Active Substance: ONDANSETRON
     Indication: T-cell lymphoma
     Dosage: 24 MILLIGRAM
     Route: 048
     Dates: start: 20221024, end: 20221026
  3. BENDAMUSTINE HYDROCHLORIDE [Suspect]
     Active Substance: BENDAMUSTINE HYDROCHLORIDE
     Indication: T-cell lymphoma
     Dosage: 420 MILLIGRAM
     Route: 042
     Dates: start: 20221024
  4. AMOXICILLIN [Suspect]
     Active Substance: AMOXICILLIN
     Indication: Infection
     Dosage: 3 GRAM, QD
     Route: 048
     Dates: start: 20221025, end: 20221031
  5. VALACYCLOVIR HYDROCHLORIDE [Suspect]
     Active Substance: VALACYCLOVIR HYDROCHLORIDE
     Indication: Anti-infective therapy
     Dosage: 1 GRAM, QD
     Route: 048
     Dates: start: 20221004, end: 20221102
  6. ATOVAQUONE [Suspect]
     Active Substance: ATOVAQUONE
     Indication: Anti-infective therapy
     Dosage: 1500 MILLIGRAM, QD
     Route: 048
     Dates: start: 20221025, end: 20221102

REACTIONS (2)
  - Acute kidney injury [Recovered/Resolved]
  - Rash [Recovered/Resolved]

NARRATIVE: CASE EVENT DATE: 20221025
